FAERS Safety Report 9596735 (Version 1)
Quarter: 2013Q4

REPORT INFORMATION
  Report Type: Spontaneous
  Country: IT (occurrence: IT)
  Receive Date: 20131004
  Receipt Date: 20131004
  Transmission Date: 20140711
  Serious: Yes (Hospitalization)
  Sender: FDA-Public Use
  Company Number: IT-GLAXOSMITHKLINE-B0927340A

PATIENT
  Age: 87 Year
  Sex: Male

DRUGS (4)
  1. ARIXTRA [Suspect]
     Indication: THROMBOSIS PROPHYLAXIS
     Dosage: 7.5MG PER DAY
     Route: 058
     Dates: start: 20130501, end: 20130503
  2. GLAZIDIM [Concomitant]
     Route: 030
     Dates: start: 20130428, end: 20130503
  3. LEVOPRAID [Concomitant]
  4. SIRIO [Concomitant]
     Dosage: 75MG PER DAY
     Route: 048

REACTIONS (4)
  - Gastrointestinal haemorrhage [Unknown]
  - Melaena [Unknown]
  - Haematemesis [Unknown]
  - Anaemia [Unknown]
